FAERS Safety Report 25770547 (Version 1)
Quarter: 2025Q3

REPORT INFORMATION
  Report Type: Spontaneous
  Country: CN (occurrence: CN)
  Receive Date: 20250908
  Receipt Date: 20250908
  Transmission Date: 20251021
  Serious: Yes (Hospitalization, Other)
  Sender: NOVARTIS
  Company Number: CN-002147023-NVSC2025CN134795

PATIENT
  Age: 66 Year
  Sex: Male
  Weight: 59 kg

DRUGS (4)
  1. CARBAMAZEPINE [Suspect]
     Active Substance: CARBAMAZEPINE
     Indication: Herpes zoster
     Dosage: 200 MG, QD
     Route: 048
     Dates: start: 20250719, end: 20250807
  2. CARBAMAZEPINE [Suspect]
     Active Substance: CARBAMAZEPINE
     Indication: Trigeminal nerve disorder
  3. METHYLCOBALAMIN [Concomitant]
     Active Substance: METHYLCOBALAMIN
     Indication: Herpes zoster
     Dosage: 0.5 MG, TID
     Route: 048
     Dates: start: 20250719, end: 20250807
  4. ACYCLOVIR [Concomitant]
     Active Substance: ACYCLOVIR
     Indication: Herpes zoster
     Dosage: 200 MG, 5QD
     Route: 048
     Dates: start: 20250719, end: 20250807

REACTIONS (5)
  - Erythema [Unknown]
  - Papule [Unknown]
  - Pruritus [Unknown]
  - Pain [Unknown]
  - Rash [Recovering/Resolving]

NARRATIVE: CASE EVENT DATE: 20250807
